FAERS Safety Report 7560478-1 (Version None)
Quarter: 2011Q2

REPORT INFORMATION
  Report Type: 
  Country: None (occurrence: None)
  Receive Date: 20110621
  Receipt Date: 20110613
  Transmission Date: 20111010
  Serious: Yes (Other)
  Sender: FDA-Public Use
  Company Number: MY-BRISTOL-MYERS SQUIBB COMPANY-14022800

PATIENT
  Age: 48 Year
  Sex: Male

DRUGS (5)
  1. SALBUTAMOL INHALER [Concomitant]
     Route: 055
     Dates: start: 20020101
  2. THEOPHYLLINE-SR [Concomitant]
     Dates: start: 20020101
  3. WARFARIN SODIUM [Suspect]
     Indication: THROMBOSIS PROPHYLAXIS
     Dosage: STARTED ON 02OCT07 + STOPPED ON 30NOV07. RESTARTED ON 3DEC07 AND PERMANENTLY STOPPED ON 7DEC07
     Route: 048
     Dates: start: 20071002, end: 20071210
  4. PLACEBO [Suspect]
     Indication: THROMBOSIS PROPHYLAXIS
     Dosage: STARTED ON 02OCT07 + STOPPED ON 30NOV07. RESTARTED ON 3DEC07 AND PERMANENTLY STOPPED ON 7DEC07.
     Route: 048
     Dates: start: 20071002, end: 20071210
  5. BECOTIDE INHALER [Concomitant]
     Route: 055
     Dates: start: 20020101

REACTIONS (2)
  - MYALGIA [None]
  - BLOOD CREATINE PHOSPHOKINASE INCREASED [None]
